FAERS Safety Report 13566537 (Version 2)
Quarter: 2017Q2

REPORT INFORMATION
  Report Type: Report from Study
  Country: None (occurrence: FR)
  Receive Date: 20170522
  Receipt Date: 20170602
  Transmission Date: 20170830
  Serious: Yes (Death, Hospitalization, Other)
  Sender: FDA-Public Use
  Company Number: FR-ABBVIE-17K-056-1982489-00

PATIENT
  Sex: Female

DRUGS (1)
  1. DUODOPA [Suspect]
     Active Substance: CARBIDOPA\LEVODOPA
     Indication: PRODUCT USED FOR UNKNOWN INDICATION
     Dosage: MD:5ML;ED:2.5X2ML, CD: 1.6 ML/H FROM 6.00 AM TO 8.00 PM, NO NIGHT DOSE
     Route: 050
     Dates: start: 201607

REACTIONS (8)
  - Ischaemic stroke [Fatal]
  - Swelling face [Unknown]
  - Cerebral haemorrhage [Unknown]
  - Coma [Fatal]
  - Eyelid haematoma [Unknown]
  - Ischaemic stroke [Unknown]
  - Fall [Unknown]
  - Cardiac failure [Unknown]

NARRATIVE: CASE EVENT DATE: 20170516
